FAERS Safety Report 12174535 (Version 1)
Quarter: 2016Q1

REPORT INFORMATION
  Report Type: Spontaneous
  Country: US (occurrence: US)
  Receive Date: 20160311
  Receipt Date: 20160311
  Transmission Date: 20160526
  Serious: Yes (Other)
  Sender: FDA-Public Use
  Company Number: US-JNJFOC-20160301015

PATIENT
  Sex: Male

DRUGS (1)
  1. BENGAY COLD THERAPY WITH PRO-COOL TECHNOLOGY [Suspect]
     Active Substance: MENTHOL
     Indication: ACCIDENTAL EXPOSURE TO PRODUCT
     Route: 047

REACTIONS (3)
  - Accidental exposure to product [Unknown]
  - Loss of consciousness [Unknown]
  - Rhinorrhoea [Unknown]
